FAERS Safety Report 20858426 (Version 2)
Quarter: 2024Q2

REPORT INFORMATION
  Report Type: Spontaneous
  Country: US (occurrence: US)
  Receive Date: 20220521
  Receipt Date: 20240515
  Transmission Date: 20240716
  Serious: No
  Sender: FDA-Public Use
  Company Number: US-SA-2022SA183532

PATIENT
  Age: 65 Year
  Sex: Female

DRUGS (2)
  1. DUPIXENT [Suspect]
     Active Substance: DUPILUMAB
     Indication: Asthma
     Dosage: 300 MG, QOW
     Route: 058
     Dates: start: 201908
  2. DUPIXENT [Suspect]
     Active Substance: DUPILUMAB
     Indication: Nasal polyps

REACTIONS (7)
  - Alopecia [Not Recovered/Not Resolved]
  - Raynaud^s phenomenon [Unknown]
  - Hypoaesthesia [Unknown]
  - Vision blurred [Unknown]
  - Dry eye [Unknown]
  - Rash [Not Recovered/Not Resolved]
  - Eye irritation [Unknown]

NARRATIVE: CASE EVENT DATE: 20240101
